FAERS Safety Report 4466190-X (Version None)
Quarter: 2004Q3

REPORT INFORMATION
  Report Type: 
  Country: None (occurrence: None)
  Receive Date: 20040930
  Receipt Date: 20040917
  Transmission Date: 20050211
  Serious: Yes (Other)
  Sender: FDA-Public Use
  Company Number: 2004066478

PATIENT
  Age: 42 Year
  Sex: Male

DRUGS (1)
  1. ZOLOFT [Suspect]
     Indication: DEPRESSION
     Dosage: 100 MG (1 IN 1 D)
     Dates: start: 20040101

REACTIONS (3)
  - FUMBLING [None]
  - HEADACHE [None]
  - HYPOAESTHESIA [None]
